FAERS Safety Report 7076651-5 (Version None)
Quarter: 2010Q4

REPORT INFORMATION
  Report Type: 
  Country: None (occurrence: None)
  Receive Date: 20101101
  Receipt Date: 20101019
  Transmission Date: 20110411
  Serious: Yes (Other)
  Sender: FDA-Public Use
  Company Number: US-PFIZER INC-2010133369

PATIENT
  Age: 46 Year
  Sex: Female
  Weight: 68 kg

DRUGS (5)
  1. LYRICA [Suspect]
     Indication: FIBROMYALGIA
     Dosage: UNK
     Dates: start: 20100701
  2. LUNESTA [Suspect]
     Indication: INSOMNIA
     Dosage: 3 MG, 1X/DAY AT NIGHT
     Route: 048
     Dates: end: 20100919
  3. MELATONIN [Concomitant]
  4. FLEXERIL [Concomitant]
  5. TIZANIDINE [Concomitant]

REACTIONS (1)
  - DIPLOPIA [None]
